FAERS Safety Report 11513220 (Version 1)
Quarter: 2015Q3

REPORT INFORMATION
  Report Type: Spontaneous
  Country: US (occurrence: US)
  Receive Date: 20150916
  Receipt Date: 20150916
  Transmission Date: 20151125
  Serious: No
  Sender: FDA-Public Use
  Company Number: US-PERRIGO-14US011192

PATIENT
  Age: 58 Year
  Sex: Male

DRUGS (3)
  1. IMIQUIMOD 5% 2H1 [Suspect]
     Active Substance: IMIQUIMOD
     Indication: SKIN PAPILLOMA
     Dosage: ONE SMALL APPLICATION, BID
     Route: 061
     Dates: start: 20140825
  2. LEVOTHYROXINE. [Concomitant]
     Active Substance: LEVOTHYROXINE
     Indication: HYPOTHYROIDISM
     Dosage: UNK
     Route: 048
  3. FLUOROURACIL. [Suspect]
     Active Substance: FLUOROURACIL
     Indication: SKIN PAPILLOMA
     Dosage: ONE SMALL APPLICATION, BID
     Route: 061
     Dates: start: 20140825

REACTIONS (2)
  - Off label use [Unknown]
  - Application site pain [Unknown]

NARRATIVE: CASE EVENT DATE: 20140825
